FAERS Safety Report 7042942-7 (Version None)
Quarter: 2010Q4

REPORT INFORMATION
  Report Type: 
  Country: None (occurrence: None)
  Receive Date: 20101013
  Receipt Date: 20100623
  Transmission Date: 20110411
  Serious: No
  Sender: FDA-Public Use
  Company Number: US-ASTRAZENECA-2010SE29408

PATIENT
  Sex: Male

DRUGS (10)
  1. SYMBICORT [Suspect]
     Dosage: 80/4.5 UG, 2 PUFFS BID
     Route: 055
  2. ATENOLOL [Concomitant]
  3. LISINOPRIL [Concomitant]
  4. AMLODIPINE [Concomitant]
  5. GLIPIZIDE [Concomitant]
  6. SIMVASTATIN [Concomitant]
  7. BUSPIRONE HCL [Concomitant]
  8. MONTELUKAST [Concomitant]
  9. VITAMINS [Concomitant]
  10. ASPIRIN [Concomitant]

REACTIONS (1)
  - DYSPNOEA [None]
